FAERS Safety Report 6075791-7 (Version None)
Quarter: 2009Q1

REPORT INFORMATION
  Report Type: 
  Country: None (occurrence: None)
  Receive Date: 20090212
  Receipt Date: 20090203
  Transmission Date: 20090719
  Serious: Yes (Other)
  Sender: FDA-Public Use
  Company Number: PHHY2009BR03922

PATIENT
  Age: 62 Year
  Sex: Female
  Weight: 69 kg

DRUGS (2)
  1. FLOTAC [Suspect]
     Indication: VARICOSE VEIN
     Dosage: 70 MG, 2 CAPSULES
     Route: 048
     Dates: start: 20090201, end: 20090202
  2. CRESTOR [Concomitant]
     Indication: BLOOD CHOLESTEROL
     Dosage: 1 TAB PER DAY, FOR 1 MONTH
     Route: 048

REACTIONS (2)
  - CHROMATURIA [None]
  - HAEMORRHAGE [None]
